FAERS Safety Report 22521757 (Version 2)
Quarter: 2023Q2

REPORT INFORMATION
  Report Type: Report from Study
  Country: US (occurrence: US)
  Receive Date: 20230605
  Receipt Date: 20230606
  Transmission Date: 20230721
  Serious: No
  Sender: FDA-Public Use
  Company Number: US-002147023-NVSC2023US122312

PATIENT
  Sex: Male
  Weight: 127.01 kg

DRUGS (1)
  1. CLOBETASOL [Suspect]
     Active Substance: CLOBETASOL
     Indication: Product used for unknown indication
     Dosage: UNK
     Route: 065

REACTIONS (5)
  - Furuncle [Unknown]
  - Swelling [Unknown]
  - Pruritus [Unknown]
  - Urticarial dermatitis [Unknown]
  - Skin burning sensation [Unknown]
